FAERS Safety Report 5310594-X (Version None)
Quarter: 2007Q1

REPORT INFORMATION
  Report Type: 
  Country: None (occurrence: None)
  Receive Date: 20070201
  Receipt Date: 20061117
  Transmission Date: 20070707
  Serious: No
  Sender: FDA-Public Use
  Company Number: 258644

PATIENT
  Age: 55 Year
  Sex: Female
  Weight: 124.3 kg

DRUGS (5)
  1. LEVEMIR [Suspect]
     Indication: INSULIN-REQUIRING TYPE II DIABETES MELLITUS
     Dosage: 80 IU, QD, SUBCUTANEOUS
     Route: 058
     Dates: start: 20061116
  2. AVANDAMET (METFORMIN HYDROCHLORIDE, ROSIGLITAZONE MALEATE) CAPSULE [Concomitant]
  3. SIMVASTATIN [Concomitant]
  4. TORSEMIDE [Concomitant]
  5. QUINAPRIL HCL [Concomitant]

REACTIONS (2)
  - INJECTION SITE PRURITUS [None]
  - INTENTIONAL DRUG MISUSE [None]
